FAERS Safety Report 10597112 (Version 4)
Quarter: 2015Q2

REPORT INFORMATION
  Report Type: Spontaneous
  Country: TR (occurrence: TR)
  Receive Date: 20141121
  Receipt Date: 20150406
  Transmission Date: 20150821
  Serious: Yes (Other)
  Sender: FDA-Public Use
  Company Number: TR-AMGEN-TURSP2013044183

PATIENT
  Age: 27 Year
  Sex: Male

DRUGS (5)
  1. MAJEZIK [Concomitant]
     Active Substance: FLURBIPROFEN
     Dosage: UNK, AS NEEDED
  2. ENBREL [Suspect]
     Active Substance: ETANERCEPT
     Dosage: UNK
     Route: 065
     Dates: start: 201407, end: 201409
  3. ENBREL [Suspect]
     Active Substance: ETANERCEPT
     Dosage: 50 MG, QWK
     Route: 058
     Dates: start: 201409
  4. ENBREL [Suspect]
     Active Substance: ETANERCEPT
     Indication: ANKYLOSING SPONDYLITIS
     Dosage: 50 MG, WEEKLY
     Route: 058
     Dates: start: 20110329
  5. ENBREL [Suspect]
     Active Substance: ETANERCEPT
     Dosage: 50 MG, PER 10 DAYS
     Route: 058
     Dates: start: 201407

REACTIONS (10)
  - Injection site swelling [Not Recovered/Not Resolved]
  - Injection site haemorrhage [Recovered/Resolved]
  - Fracture [Recovered/Resolved]
  - Dental caries [Not Recovered/Not Resolved]
  - Road traffic accident [Recovered/Resolved]
  - Tooth fracture [Not Recovered/Not Resolved]
  - Injection site bruising [Recovered/Resolved]
  - Paraesthesia oral [Recovered/Resolved]
  - Injection site pain [Recovered/Resolved]
  - Influenza [Recovered/Resolved]

NARRATIVE: CASE EVENT DATE: 2011
